FAERS Safety Report 17484540 (Version 2)
Quarter: 2020Q2

REPORT INFORMATION
  Report Type: Spontaneous
  Country: IT (occurrence: IT)
  Receive Date: 20200302
  Receipt Date: 20200415
  Transmission Date: 20200713
  Serious: Yes (Hospitalization)
  Sender: FDA-Public Use
  Company Number: IT-MYLANLABS-2020M1021758

PATIENT
  Age: 79 Year
  Sex: Female

DRUGS (2)
  1. TEICOPLANINA MYLAN GENERICS [Suspect]
     Active Substance: TEICOPLANIN
     Indication: URINARY TRACT INFECTION
     Dosage: 600 MILLIGRAM, CYCLE
  2. PIPERACILLIN/TAZOBACTAM HOSPIRA [Suspect]
     Active Substance: PIPERACILLIN SODIUM\TAZOBACTAM SODIUM
     Indication: URINARY TRACT INFECTION
     Dosage: 9 GRAM, QD

REACTIONS (1)
  - Skin reaction [Recovering/Resolving]

NARRATIVE: CASE EVENT DATE: 20191219
